FAERS Safety Report 10973774 (Version 1)
Quarter: 2015Q1

REPORT INFORMATION
  Report Type: Spontaneous
  Country: None (occurrence: None)
  Receive Date: 20150331
  Receipt Date: 20150331
  Transmission Date: 20150721
  Serious: Yes (Disabling, Other)
  Sender: FDA-Public Use
  Company Number: None

PATIENT
  Age: 16 Year
  Sex: Female

DRUGS (2)
  1. PREDNISONE. [Suspect]
     Active Substance: PREDNISONE
     Indication: COLITIS
     Route: 048
  2. PREDNISONE. [Suspect]
     Active Substance: PREDNISONE
     Indication: MALAISE
     Route: 048

REACTIONS (11)
  - Delirium [None]
  - Anger [None]
  - Insomnia [None]
  - Substance-induced psychotic disorder [None]
  - Suicidal ideation [None]
  - Irritability [None]
  - Aggression [None]
  - Depression [None]
  - Speech disorder [None]
  - Anxiety [None]
  - Hallucination [None]

NARRATIVE: CASE EVENT DATE: 19860615
